FAERS Safety Report 5043825-4 (Version None)
Quarter: 2006Q3

REPORT INFORMATION
  Report Type: 
  Country: None (occurrence: None)
  Receive Date: 20060706
  Receipt Date: 20060324
  Transmission Date: 20061208
  Serious: Yes (Other)
  Sender: FDA-Public Use
  Company Number: PHEH2006US03904

PATIENT
  Age: 75 Year
  Sex: Male

DRUGS (4)
  1. EXJADE [Suspect]
     Indication: BLOOD IRON INCREASED
     Dosage: 1250 MG, QD
     Route: 048
     Dates: start: 20000316, end: 20060323
  2. PREDNISONE TAB [Concomitant]
     Dosage: 5 MG, QD
  3. LASIX [Concomitant]
     Indication: ASCITES
     Dosage: 40MG QAM, 60MG QPM
  4. SPIRONOLACTONE [Concomitant]

REACTIONS (3)
  - BLOOD CREATININE INCREASED [None]
  - BLOOD UREA INCREASED [None]
  - RENAL FAILURE ACUTE [None]
